FAERS Safety Report 13026947 (Version 1)
Quarter: 2016Q4

REPORT INFORMATION
  Report Type: Spontaneous
  Country: PE (occurrence: PE)
  Receive Date: 20161214
  Receipt Date: 20161214
  Transmission Date: 20170207
  Serious: Yes (Hospitalization)
  Sender: FDA-Public Use
  Company Number: PE-PFIZER INC-2016565846

PATIENT
  Age: 52 Year
  Sex: Male

DRUGS (2)
  1. CORODIN [Concomitant]
     Indication: HYPERTENSION
     Dosage: 1 DF (50/12/5 2), DAILY
  2. LYRICA [Suspect]
     Active Substance: PREGABALIN
     Dosage: 75 MG, DAILY
     Dates: start: 2015

REACTIONS (5)
  - General physical health deterioration [Unknown]
  - Burning sensation [Unknown]
  - Limb discomfort [Unknown]
  - Cardiac disorder [Unknown]
  - Blood pressure decreased [Unknown]
